FAERS Safety Report 17899502 (Version 1)
Quarter: 2020Q2

REPORT INFORMATION
  Report Type: Spontaneous
  Country: US (occurrence: US)
  Receive Date: 20200615
  Receipt Date: 20200615
  Transmission Date: 20200714
  Serious: Yes (Life-Threatening, Disabling, Other)
  Sender: FDA-Public Use
  Company Number: None

PATIENT
  Age: 73 Year
  Sex: Female
  Weight: 92.7 kg

DRUGS (4)
  1. NP THYROID 150MG [Concomitant]
  2. ONE A DAY OVER 50 VITAMIN [Concomitant]
  3. NP THYROID [Suspect]
     Active Substance: LEVOTHYROXINE\LIOTHYRONINE
     Indication: HYPOTHYROIDISM
     Route: 048
     Dates: start: 20200212, end: 20200605
  4. D3 W/K 10,000 [Concomitant]

REACTIONS (10)
  - Arrhythmia [None]
  - Gait disturbance [None]
  - Recalled product administered [None]
  - Vascular injury [None]
  - Temperature intolerance [None]
  - Muscular weakness [None]
  - Tremor [None]
  - Hypertension [None]
  - Joint swelling [None]
  - Dyspnoea [None]

NARRATIVE: CASE EVENT DATE: 20200212
